FAERS Safety Report 5833114-X (Version None)
Quarter: 2008Q3

REPORT INFORMATION
  Report Type: 
  Country: None (occurrence: None)
  Receive Date: 20080805
  Receipt Date: 20080719
  Transmission Date: 20090109
  Serious: No
  Sender: FDA-Public Use
  Company Number: US-ASTRAZENECA-2008UW14553

PATIENT
  Age: 62 Year
  Sex: Female

DRUGS (5)
  1. NEXIUM [Suspect]
     Route: 048
  2. LOMOTIL [Suspect]
     Indication: IRRITABLE BOWEL SYNDROME
     Dosage: 2 TABS Q 6HOURS
  3. HYOSCYAMINE [Suspect]
     Indication: MUSCLE SPASMS
  4. ATIVAN [Suspect]
  5. PREMARIN [Suspect]
     Indication: HORMONE THERAPY

REACTIONS (2)
  - DIARRHOEA [None]
  - HEADACHE [None]
